FAERS Safety Report 7634352-6 (Version None)
Quarter: 2011Q3

REPORT INFORMATION
  Report Type: 
  Country: None (occurrence: None)
  Receive Date: 20110725
  Receipt Date: 20110725
  Transmission Date: 20111222
  Serious: Yes (Other)
  Sender: FDA-Public Use
  Company Number: JP-ABBOTT-11P-087-0734235-00

PATIENT
  Sex: Female

DRUGS (9)
  1. GASMOTIN [Concomitant]
     Indication: DYSPEPSIA
     Route: 048
     Dates: start: 20110303
  2. ALENDRONATE SODIUM [Concomitant]
     Indication: OSTEOPOROSIS
     Route: 048
     Dates: start: 20110303
  3. GANATON [Concomitant]
     Indication: DYSPEPSIA
     Route: 048
     Dates: start: 20110303
  4. LANSOPRAZOLE [Concomitant]
     Indication: GASTROOESOPHAGEAL REFLUX DISEASE
     Route: 048
     Dates: start: 20110303
  5. CLARITHROMYCIN [Suspect]
     Indication: ATYPICAL MYCOBACTERIAL INFECTION
     Route: 048
     Dates: start: 20110303, end: 20110524
  6. RIFADIN [Suspect]
     Indication: ATYPICAL MYCOBACTERIAL INFECTION
     Route: 048
     Dates: start: 20110303, end: 20110524
  7. ETHAMBUTOL HYDROCHLORIDE [Suspect]
     Indication: ATYPICAL MYCOBACTERIAL INFECTION
     Route: 048
     Dates: start: 20110303, end: 20110524
  8. RIFADIN [Suspect]
     Dates: start: 20110607, end: 20110621
  9. MAGMITT [Concomitant]
     Indication: CONSTIPATION
     Route: 048
     Dates: start: 20110303

REACTIONS (2)
  - DRUG HYPERSENSITIVITY [None]
  - NEUTROPHIL COUNT DECREASED [None]
